FAERS Safety Report 19880965 (Version 7)
Quarter: 2024Q1

REPORT INFORMATION
  Report Type: Spontaneous
  Country: DE (occurrence: DE)
  Receive Date: 20210924
  Receipt Date: 20240129
  Transmission Date: 20240410
  Serious: Yes (Death, Life-Threatening, Hospitalization, Other)
  Sender: FDA-Public Use
  Company Number: None

PATIENT

DRUGS (17)
  1. PEMAZYRE [Suspect]
     Active Substance: PEMIGATINIB
     Indication: Cholangiocarcinoma
     Dosage: 13.5 MILLIGRAM, QD FOR 2 WEEKS FOLLOWED BY ONE-WEEK PAUSE
     Route: 048
     Dates: start: 202004
  2. PEMAZYRE [Suspect]
     Active Substance: PEMIGATINIB
     Dosage: 9 MILLIGRAM, QD (DAY 1-14 1X/DAY; 21D))
     Route: 048
     Dates: start: 20200504, end: 20210803
  3. PEMAZYRE [Suspect]
     Active Substance: PEMIGATINIB
     Dosage: FOR 2?WEEKS, FOLLOWED BY 1?WEEK PAUSE
     Route: 048
     Dates: start: 202005
  4. PEMAZYRE [Suspect]
     Active Substance: PEMIGATINIB
     Dosage: 9 MILLIGRAM, QD FOR 2 WEEKS FOLLOWED BY ONE-WEEK PAUSE
     Route: 048
     Dates: start: 202103, end: 202109
  5. PEMAZYRE [Suspect]
     Active Substance: PEMIGATINIB
     Dosage: FOR 2?WEEKS, FOLLOWED BY 1?WEEK PAUSE
     Route: 065
  6. OXALIPLATIN [Suspect]
     Active Substance: OXALIPLATIN
     Indication: Cholangiocarcinoma
     Dosage: EVERY 2?WEEKS AS A PART OF FOLFOX REGIMEN
     Route: 065
     Dates: start: 201907, end: 202002
  7. AZACITIDINE [Suspect]
     Active Substance: AZACITIDINE
     Indication: Acute myeloid leukaemia
     Dosage: 75 MILLIGRAM/SQ. METER
     Route: 065
     Dates: start: 202109
  8. IRINOTECAN [Suspect]
     Active Substance: IRINOTECAN
     Indication: Cholangiocarcinoma
     Dosage: EVERY 2 WEEKS AS A PART OF FOLFIRI REGIMEN
     Route: 065
     Dates: start: 202002
  9. FLUOROURACIL [Suspect]
     Active Substance: FLUOROURACIL
     Indication: Cholangiocarcinoma
     Dosage: 400?MG/M2 AS BOLUS EVERY 2?WEEKS AS A PART OF FOLFOX REGIMEN
     Route: 065
     Dates: start: 201907, end: 202002
  10. FLUOROURACIL [Suspect]
     Active Substance: FLUOROURACIL
     Dosage: 3000?MG/M2 AS 48H INFUSION EVERY 2?WEEKS AS A PART OF FOLFOX REGIMEN
     Route: 065
     Dates: start: 201907, end: 202002
  11. FLUOROURACIL [Suspect]
     Active Substance: FLUOROURACIL
     Dosage: 400?MG/M2 AS BOLUS EVERY 2?WEEKS AS A PART OF FOLFIRI REGIMEN
     Route: 065
     Dates: start: 202002
  12. FLUOROURACIL [Suspect]
     Active Substance: FLUOROURACIL
     Dosage: 2400?MG/M2 AS 48H INFUSION EVERY 2?WEEKS AS A PART OF FOLFIRI REGIMEN
     Route: 065
     Dates: start: 202002
  13. FOLIC ACID [Suspect]
     Active Substance: FOLIC ACID
     Indication: Cholangiocarcinoma
     Dosage: EVERY 2?WEEKS AS A PART OF FOLFOX REGIMEN
     Route: 065
     Dates: start: 201907, end: 202002
  14. FOLIC ACID [Suspect]
     Active Substance: FOLIC ACID
     Dosage: EVERY 2?WEEKS AS A PART OF FOLFIRI REGIMEN
     Route: 065
     Dates: start: 202002
  15. DARBEPOETIN ALFA [Concomitant]
     Active Substance: DARBEPOETIN ALFA
     Indication: Anaemia
     Dosage: UNK
     Route: 065
     Dates: start: 202011, end: 202012
  16. METFORMIN [Concomitant]
     Active Substance: METFORMIN HYDROCHLORIDE
     Indication: Product used for unknown indication
     Dosage: 500 MILLIGRAM, BID (1-0-1)
     Route: 065
  17. METOPROLOL [Concomitant]
     Active Substance: METOPROLOL
     Indication: Product used for unknown indication
     Dosage: 47.5 MILLIGRAM, BID (1-0-1)
     Route: 065

REACTIONS (5)
  - Acute myeloid leukaemia [Fatal]
  - Pneumonia [Fatal]
  - Infection [Fatal]
  - Disease progression [Fatal]
  - Treatment failure [Unknown]

NARRATIVE: CASE EVENT DATE: 20210818
